FAERS Safety Report 8874886 (Version 1)
Quarter: 2012Q4

REPORT INFORMATION
  Report Type: 
  Country: US (occurrence: US)
  Receive Date: 20121026
  Receipt Date: 20121026
  Transmission Date: 20130627
  Serious: No
  Sender: FDA-Public Use
  Company Number: US-AMGEN-USASP2012042438

PATIENT
  Sex: Female
  Weight: 118 kg

DRUGS (10)
  1. ENBREL [Suspect]
     Indication: PRODUCT USED FOR UNKNOWN INDICATION
     Dosage: 50 mg, qwk
     Route: 058
  2. PLAQUENIL                          /00072602/ [Concomitant]
     Dosage: 200 mg, UNK
  3. PREDNISONE [Concomitant]
     Dosage: 5 mg, UNK
  4. OMEPRAZOLE [Concomitant]
     Dosage: 40 mg, UNK
  5. MECLIZINE                          /00072801/ [Concomitant]
     Dosage: 25 mg, UNK
  6. FIORICET [Concomitant]
     Dosage: UNK
  7. FISH OIL [Concomitant]
     Dosage: UNK
  8. VITAMIN D /00107901/ [Concomitant]
     Dosage: 1000 unit, UNK
  9. VITAMIN C                          /00008001/ [Concomitant]
     Dosage: 500 mg, UNK
  10. FOLIC ACID [Concomitant]
     Dosage: 5 mg, UNK

REACTIONS (2)
  - Headache [Unknown]
  - White blood cell count decreased [Unknown]
